FAERS Safety Report 19024818 (Version 1)
Quarter: 2021Q1

REPORT INFORMATION
  Report Type: Spontaneous
  Country: US (occurrence: US)
  Receive Date: 20210316
  Receipt Date: 20210316
  Transmission Date: 20210420
  Serious: No
  Sender: FDA-Public Use
  Company Number: None

PATIENT
  Age: 63 Year
  Sex: Female

DRUGS (1)
  1. XELJANZ XR [Suspect]
     Active Substance: TOFACITINIB CITRATE
     Indication: PSORIATIC ARTHROPATHY
     Route: 048
     Dates: start: 202103

REACTIONS (5)
  - Therapy interrupted [None]
  - Glaucoma [None]
  - Asthma [None]
  - Arthralgia [None]
  - COVID-19 [None]
